FAERS Safety Report 5247657-3 (Version None)
Quarter: 2007Q1

REPORT INFORMATION
  Report Type: 
  Country: None (occurrence: None)
  Receive Date: 20070223
  Receipt Date: 20061128
  Transmission Date: 20070707
  Serious: Yes (Death)
  Sender: FDA-Public Use
  Company Number: DSA_29390_2007

PATIENT
  Age: 79 Year
  Sex: Female

DRUGS (6)
  1. MONOTILDIEM [Suspect]
     Dosage: 300 MG Q DAY PO
     Route: 048
  2. DEPAKOTE [Suspect]
     Dosage: 500 MG BID PO
     Route: 048
  3. FLUARIX /00027001/ [Suspect]
     Indication: INFLUENZA IMMUNISATION
     Dosage: 1 DF ONCE SC
     Route: 058
     Dates: start: 20061106, end: 20061106
  4. HUMALOG MIX /01293501/ [Suspect]
     Indication: DIABETES MELLITUS
     Dosage: 1 DF Q DAY SC
     Route: 058
  5. HUMALOG MIX [Suspect]
     Indication: DIABETES MELLITUS
     Dosage: 1 DF Q DAY SC
     Route: 058
  6. TRIVASTAL [Suspect]
     Dosage: 50 MG Q DAY PO
     Route: 048

REACTIONS (3)
  - GASTROOESOPHAGEAL REFLUX DISEASE [None]
  - MYOCARDIAL INFARCTION [None]
  - NAUSEA [None]
